FAERS Safety Report 7517234-X (Version None)
Quarter: 2011Q2

REPORT INFORMATION
  Report Type: 
  Country: None (occurrence: None)
  Receive Date: 20110601
  Receipt Date: 20110415
  Transmission Date: 20111010
  Serious: Yes (Other)
  Sender: FDA-Public Use
  Company Number: US-BAYER-201032259NA

PATIENT
  Age: 59 Year
  Sex: Male
  Weight: 99.773 kg

DRUGS (33)
  1. GADOLINIUM IN UNSPECIFIED DRUG [Suspect]
     Dosage: 20 ML, ONCE
     Dates: start: 20060512, end: 20060512
  2. EPOGEN [Concomitant]
  3. ACYCLOVIR [Concomitant]
  4. NPH INSULIN [Concomitant]
  5. OPTIMARK [Suspect]
     Indication: NUCLEAR MAGNETIC RESONANCE IMAGING
  6. MIDODRINE HYDROCHLORIDE [Concomitant]
  7. FLUCONAZOLE [Concomitant]
  8. INDERAL [Concomitant]
  9. GADOLINIUM IN UNSPECIFIED DRUG [Suspect]
     Dosage: UNK
     Dates: start: 20030703, end: 20030703
  10. GADOLINIUM IN UNSPECIFIED DRUG [Suspect]
     Dosage: UNK
     Dates: start: 20041229, end: 20041229
  11. PHOSLO [Concomitant]
  12. QUININE SULFATE [Concomitant]
  13. ENBREL [Concomitant]
  14. RYTHMOL [Concomitant]
  15. GADOLINIUM IN UNSPECIFIED DRUG [Suspect]
     Indication: ANGIOGRAM
     Dosage: UNK
     Dates: start: 20030711, end: 20030711
  16. ESOMEPRAZOLE MAGNESIUM [Concomitant]
  17. CARDURA [Concomitant]
  18. DIOVAN [Concomitant]
  19. VENOFER [Concomitant]
  20. MAGNEVIST [Suspect]
     Indication: NUCLEAR MAGNETIC RESONANCE IMAGING
  21. GADOLINIUM IN UNSPECIFIED DRUG [Suspect]
     Dosage: UNK
     Dates: start: 20060330, end: 20060330
  22. NEPHROCAPS [Concomitant]
  23. ERGOCALCIFEROL [Concomitant]
  24. MULTIHANCE [Suspect]
     Indication: NUCLEAR MAGNETIC RESONANCE IMAGING
  25. METOPROLOL TARTRATE [Concomitant]
  26. PREDNISONE [Concomitant]
  27. IRON SUPPLEMENT [Concomitant]
  28. CARDIZEM [Concomitant]
  29. HECTOROL [Concomitant]
  30. OMNISCAN [Suspect]
     Indication: NUCLEAR MAGNETIC RESONANCE IMAGING
  31. PROHANCE [Suspect]
     Indication: NUCLEAR MAGNETIC RESONANCE IMAGING
  32. GADOLINIUM IN UNSPECIFIED DRUG [Suspect]
     Indication: NUCLEAR MAGNETIC RESONANCE IMAGING BRAIN
     Dosage: UNK
     Dates: start: 19960909, end: 19960909
  33. FOSRENOL [Concomitant]

REACTIONS (16)
  - NEPHROGENIC SYSTEMIC FIBROSIS [None]
  - SKIN INDURATION [None]
  - ERYTHEMA [None]
  - ARTHRALGIA [None]
  - RASH [None]
  - MUSCULOSKELETAL STIFFNESS [None]
  - HYPOAESTHESIA [None]
  - GAIT DISTURBANCE [None]
  - PAIN [None]
  - SKIN PLAQUE [None]
  - SCLERODERMA [None]
  - SKIN TIGHTNESS [None]
  - MOBILITY DECREASED [None]
  - SKIN HYPERPIGMENTATION [None]
  - PLEURAL FIBROSIS [None]
  - SUBCUTANEOUS NODULE [None]
